FAERS Safety Report 10138928 (Version 1)
Quarter: 2014Q2

REPORT INFORMATION
  Report Type: Report from Study
  Country: US (occurrence: US)
  Receive Date: 20140429
  Receipt Date: 20140429
  Transmission Date: 20141212
  Serious: Yes (Hospitalization)
  Sender: FDA-Public Use
  Company Number: US-CELGENEUS-163-21880-14043805

PATIENT
  Age: 60 Year
  Sex: Female
  Weight: 84.3 kg

DRUGS (3)
  1. REVLIMID [Suspect]
     Indication: LYMPHOMA
     Dosage: 10 MILLIGRAM
     Route: 048
     Dates: start: 20120924, end: 20140313
  2. TEMSIROLIMUS [Suspect]
     Indication: LYMPHOMA
     Route: 041
     Dates: start: 20120924
  3. TEMSIROLIMUS [Suspect]
     Route: 041
     Dates: start: 20140404, end: 20140407

REACTIONS (8)
  - Hypercalcaemia [Not Recovered/Not Resolved]
  - Hyponatraemia [Unknown]
  - Dizziness [Unknown]
  - Lethargy [Unknown]
  - Hypoalbuminaemia [Unknown]
  - Hypomagnesaemia [Unknown]
  - Lymphocyte count increased [Unknown]
  - Vision blurred [Unknown]
